FAERS Safety Report 7197960-5 (Version None)
Quarter: 2010Q4

REPORT INFORMATION
  Report Type: 
  Country: None (occurrence: None)
  Receive Date: 20101227
  Receipt Date: 20101213
  Transmission Date: 20110411
  Serious: Yes (Hospitalization, Other)
  Sender: FDA-Public Use
  Company Number: US-SANOFI-AVENTIS-2010SA075989

PATIENT

DRUGS (4)
  1. ARAVA [Suspect]
     Route: 048
  2. ETANERCEPT [Suspect]
     Indication: RHEUMATOID ARTHRITIS
     Route: 065
     Dates: start: 20030101, end: 20050101
  3. METHOTREXATE [Concomitant]
     Dates: end: 20030101
  4. PLAQUENIL [Concomitant]

REACTIONS (17)
  - ARTHROPATHY [None]
  - BLINDNESS [None]
  - COELIAC DISEASE [None]
  - DIARRHOEA [None]
  - FIBROMYALGIA [None]
  - LIVER DISORDER [None]
  - MEMORY IMPAIRMENT [None]
  - MOUTH ULCERATION [None]
  - NAUSEA [None]
  - OSTEOPOROSIS [None]
  - PERNICIOUS ANAEMIA [None]
  - PYREXIA [None]
  - RHEUMATOID ARTHRITIS [None]
  - SJOGREN'S SYNDROME [None]
  - VISION BLURRED [None]
  - VOMITING [None]
  - WEIGHT INCREASED [None]
